FAERS Safety Report 15652816 (Version 2)
Quarter: 2018Q4

REPORT INFORMATION
  Report Type: Spontaneous
  Country: US (occurrence: US)
  Receive Date: 20181123
  Receipt Date: 20181224
  Transmission Date: 20190205
  Serious: No
  Sender: FDA-Public Use
  Company Number: US-009507513-1811USA004495

PATIENT
  Sex: Female
  Weight: 121.09 kg

DRUGS (1)
  1. NEXPLANON [Suspect]
     Active Substance: ETONOGESTREL
     Indication: CONTRACEPTION
     Dosage: ONE IMPLANT, UNK
     Route: 059
     Dates: start: 20170320, end: 20181026

REACTIONS (1)
  - Device breakage [Recovered/Resolved]
